FAERS Safety Report 14949108 (Version 3)
Quarter: 2023Q4

REPORT INFORMATION
  Report Type: Spontaneous
  Country: US (occurrence: US)
  Receive Date: 20180529
  Receipt Date: 20231218
  Transmission Date: 20240109
  Serious: Yes (Life-Threatening, Hospitalization, Other)
  Sender: FDA-Public Use
  Company Number: US-PFIZER INC-2018213828

PATIENT
  Age: 75 Year
  Sex: Female
  Weight: 63.5 kg

DRUGS (4)
  1. XELJANZ [Suspect]
     Active Substance: TOFACITINIB CITRATE
     Indication: Rheumatoid arthritis
     Dosage: UNK, ALTERNATE DAY (EVERY OTHER DAY)
  2. XELJANZ [Suspect]
     Active Substance: TOFACITINIB CITRATE
     Dosage: UNK
     Dates: start: 2015, end: 201611
  3. XELJANZ [Suspect]
     Active Substance: TOFACITINIB CITRATE
     Dosage: UNK
     Dates: start: 201707, end: 201710
  4. XELJANZ [Suspect]
     Active Substance: TOFACITINIB CITRATE
     Dosage: 5 MG, 2X/DAY
     Route: 048
     Dates: start: 201711, end: 201804

REACTIONS (9)
  - Haemorrhage [Unknown]
  - Localised infection [Recovered/Resolved]
  - Joint dislocation [Unknown]
  - Therapeutic response unexpected [Unknown]
  - Herpes zoster [Unknown]
  - Infection [Recovering/Resolving]
  - Cellulitis [Not Recovered/Not Resolved]
  - Feeling hot [Unknown]
  - Intentional product misuse [Unknown]

NARRATIVE: CASE EVENT DATE: 20161205
